FAERS Safety Report 24540226 (Version 3)
Quarter: 2025Q1

REPORT INFORMATION
  Report Type: Report from Study
  Country: US (occurrence: US)
  Receive Date: 20241023
  Receipt Date: 20250209
  Transmission Date: 20250409
  Serious: Yes (Hospitalization, Other)
  Sender: NOVARTIS
  Company Number: US-002147023-NVSC2024US071024

PATIENT
  Sex: Female

DRUGS (3)
  1. KESIMPTA [Suspect]
     Active Substance: OFATUMUMAB
     Indication: Multiple sclerosis
     Dosage: 20 MG, QMO
     Route: 058
     Dates: start: 202304
  2. KESIMPTA [Suspect]
     Active Substance: OFATUMUMAB
     Indication: Relapsing multiple sclerosis
  3. TYLENOL [Concomitant]
     Active Substance: ACETAMINOPHEN
     Indication: Product used for unknown indication
     Route: 065

REACTIONS (18)
  - COVID-19 [Unknown]
  - Asthma [Unknown]
  - Multiple sclerosis [Unknown]
  - Visual impairment [Unknown]
  - Hemihypoaesthesia [Unknown]
  - Fatigue [Unknown]
  - Mood swings [Unknown]
  - Headache [Unknown]
  - Asthenia [Unknown]
  - Burning sensation [Unknown]
  - Vision blurred [Unknown]
  - Pain in extremity [Unknown]
  - Dyskinesia [Unknown]
  - Spinal pain [Unknown]
  - Pain [Unknown]
  - Memory impairment [Unknown]
  - Tearfulness [Unknown]
  - Stress [Unknown]
